FAERS Safety Report 21454728 (Version 1)
Quarter: 2022Q4

REPORT INFORMATION
  Report Type: Spontaneous
  Country: GB (occurrence: GB)
  Receive Date: 20221014
  Receipt Date: 20221014
  Transmission Date: 20230113
  Serious: Yes (Hospitalization)
  Sender: FDA-Public Use
  Company Number: None

PATIENT
  Age: 83 Year
  Sex: Female

DRUGS (7)
  1. PREGABALIN [Suspect]
     Active Substance: PREGABALIN
     Indication: Neuralgia
  2. PREGABALIN [Suspect]
     Active Substance: PREGABALIN
     Dosage: 200 MG OD (50MG IN THE MORNING AND 150MG AT NIGHT)
  3. PREGABALIN [Suspect]
     Active Substance: PREGABALIN
     Dosage: 200 MG OD (50MG IN THE MORNING AND 150MG AT NIGHT)
  4. QUININE SULFATE [Concomitant]
     Active Substance: QUININE SULFATE
     Indication: Muscle spasms
  5. LORATADINE [Concomitant]
     Active Substance: LORATADINE
     Indication: Product used for unknown indication
     Dosage: 10MG TABLETS 1OM
  6. SERETIDE [Concomitant]
     Active Substance: FLUTICASONE PROPIONATE\SALMETEROL XINAFOATE
     Indication: Product used for unknown indication
     Dosage: 125 EVOHALETWO PUFFS TWICE A DA Y
  7. ALBUTEROL SULFATE [Concomitant]
     Active Substance: ALBUTEROL SULFATE
     Indication: Product used for unknown indication
     Dosage: 100 MICROGRAMS/DOSE

REACTIONS (2)
  - Fall [Recovered/Resolved with Sequelae]
  - Tibia fracture [Unknown]
